FAERS Safety Report 4917841-4 (Version None)
Quarter: 2006Q1

REPORT INFORMATION
  Report Type: 
  Country: None (occurrence: None)
  Receive Date: 20060214
  Receipt Date: 20060130
  Transmission Date: 20060701
  Serious: Yes (Hospitalization, Other)
  Sender: FDA-Public Use
  Company Number: 2006000247

PATIENT
  Age: 67 Year
  Sex: Male

DRUGS (6)
  1. TARCEVA [Suspect]
     Indication: NON-SMALL CELL LUNG CANCER
     Dosage: 150 MG (QD), ORAL
     Route: 048
     Dates: start: 20060110, end: 20060112
  2. MORPHINE SULFATE [Suspect]
     Dosage: 40 MG (BID), ORAL
     Route: 048
  3. GABAPENTIN [Concomitant]
  4. WARFARIN SODIUM [Concomitant]
  5. DEXAMETHASONE [Concomitant]
  6. LANSOPRAZOLE [Concomitant]

REACTIONS (5)
  - ACUTE PULMONARY OEDEMA [None]
  - DRUG TOXICITY [None]
  - INTERNATIONAL NORMALISED RATIO INCREASED [None]
  - LOSS OF CONSCIOUSNESS [None]
  - OEDEMA PERIPHERAL [None]
